FAERS Safety Report 11783642 (Version 1)
Quarter: 2015Q4

REPORT INFORMATION
  Report Type: Spontaneous
  Country: CA (occurrence: CA)
  Receive Date: 20151127
  Receipt Date: 20151127
  Transmission Date: 20160305
  Serious: Yes (Life-Threatening, Hospitalization)
  Sender: FDA-Public Use
  Company Number: CA-APOTEX-2015AP014859

PATIENT
  Age: 64 Year
  Sex: Male

DRUGS (1)
  1. APO-DILTIAZ [Suspect]
     Active Substance: DILTIAZEM HYDROCHLORIDE
     Indication: INTENTIONAL OVERDOSE
     Dosage: 19.4 G, UNK
     Route: 048

REACTIONS (9)
  - Cardiac arrest [Recovering/Resolving]
  - Generalised tonic-clonic seizure [Recovering/Resolving]
  - Ischaemic hepatitis [Recovering/Resolving]
  - Anuria [Recovering/Resolving]
  - Intentional overdose [Recovering/Resolving]
  - Lactic acidosis [Recovering/Resolving]
  - Hypotension [Recovering/Resolving]
  - Bradycardia [Recovering/Resolving]
  - Tetany [Recovering/Resolving]
